FAERS Safety Report 15795264 (Version 1)
Quarter: 2019Q1

REPORT INFORMATION
  Report Type: Spontaneous
  Country: US (occurrence: US)
  Receive Date: 20190107
  Receipt Date: 20190107
  Transmission Date: 20190417
  Serious: No
  Sender: FDA-Public Use
  Company Number: None

PATIENT
  Sex: Male

DRUGS (1)
  1. CLONAZEPAM. [Suspect]
     Active Substance: CLONAZEPAM

REACTIONS (3)
  - Panic attack [None]
  - Somnolence [None]
  - Drug ineffective [None]
